FAERS Safety Report 9373909 (Version 1)
Quarter: 2013Q2

REPORT INFORMATION
  Report Type: Spontaneous
  Country: FR (occurrence: FR)
  Receive Date: 20130628
  Receipt Date: 20130628
  Transmission Date: 20140414
  Serious: Yes (Other)
  Sender: FDA-Public Use
  Company Number: FR-ROCHE-1242261

PATIENT
  Age: 56 Year
  Sex: Male

DRUGS (9)
  1. VALIUM [Suspect]
     Indication: PRODUCT USED FOR UNKNOWN INDICATION
     Route: 048
     Dates: start: 20130424, end: 20130501
  2. BRILIQUE [Suspect]
     Indication: ACUTE CORONARY SYNDROME
     Route: 048
     Dates: start: 20130422, end: 20130426
  3. AMOXICILLIN TRIHYDRATE/CLAVULANATE POTASSIUM [Suspect]
     Indication: PRODUCT USED FOR UNKNOWN INDICATION
     Route: 042
     Dates: start: 20130426, end: 20130503
  4. FUROSEMIDE [Suspect]
     Indication: PRODUCT USED FOR UNKNOWN INDICATION
     Route: 042
     Dates: start: 20130426, end: 20130430
  5. TERBUTALINE [Suspect]
     Indication: PRODUCT USED FOR UNKNOWN INDICATION
     Route: 055
     Dates: start: 20130425, end: 20130426
  6. NORADRENALINE [Suspect]
     Indication: PRODUCT USED FOR UNKNOWN INDICATION
     Route: 042
     Dates: start: 20130423, end: 20130427
  7. ATARAX (FRANCE) [Suspect]
     Indication: PRODUCT USED FOR UNKNOWN INDICATION
     Route: 048
     Dates: start: 20130424, end: 20130501
  8. REOPRO [Concomitant]
     Route: 065
     Dates: start: 20130422
  9. KARDEGIC [Concomitant]

REACTIONS (1)
  - Bradycardia [Recovered/Resolved]
